FAERS Safety Report 12863956 (Version 1)
Quarter: 2016Q4

REPORT INFORMATION
  Report Type: Spontaneous
  Country: CN (occurrence: CN)
  Receive Date: 20161019
  Receipt Date: 20161019
  Transmission Date: 20170207
  Serious: Yes (Other)
  Sender: FDA-Public Use
  Company Number: CN-BAXTER-2016BAX052367

PATIENT
  Age: 77 Year
  Sex: Female
  Weight: 44 kg

DRUGS (13)
  1. 5% GLUCOSE  INJECTION [Suspect]
     Active Substance: DEXTROSE
     Indication: HYPOPHAGIA
  2. SODIUM [Suspect]
     Active Substance: SODIUM
     Indication: HYPOPHAGIA
  3. POTASSIUM [Suspect]
     Active Substance: POTASSIUM
     Indication: DECREASED APPETITE
     Route: 041
  4. CERNEVIT [Suspect]
     Active Substance: VITAMINS
     Indication: HYPOPHAGIA
  5. CALCIUM [Suspect]
     Active Substance: CALCIUM
     Indication: DECREASED APPETITE
     Route: 041
  6. CERNEVIT [Suspect]
     Active Substance: VITAMINS
     Indication: LUNG NEOPLASM MALIGNANT
     Dosage: 1 VIAL
     Route: 041
     Dates: start: 20160513, end: 20160524
  7. MAGNESIUM [Suspect]
     Active Substance: MAGNESIUM
     Indication: DECREASED APPETITE
     Route: 041
  8. MAGNESIUM [Suspect]
     Active Substance: MAGNESIUM
     Indication: HYPOPHAGIA
  9. SODIUM [Suspect]
     Active Substance: SODIUM
     Indication: DECREASED APPETITE
     Route: 041
  10. 5% GLUCOSE  INJECTION [Suspect]
     Active Substance: DEXTROSE
     Indication: DECREASED APPETITE
     Route: 041
  11. CERNEVIT [Suspect]
     Active Substance: VITAMINS
     Indication: DECREASED APPETITE
  12. POTASSIUM [Suspect]
     Active Substance: POTASSIUM
     Indication: HYPOPHAGIA
  13. CALCIUM [Suspect]
     Active Substance: CALCIUM
     Indication: HYPOPHAGIA

REACTIONS (2)
  - Dyspnoea [Recovered/Resolved]
  - Chest discomfort [Recovered/Resolved]

NARRATIVE: CASE EVENT DATE: 20160523
